FAERS Safety Report 9684567 (Version 1)
Quarter: 2013Q4

REPORT INFORMATION
  Report Type: Spontaneous
  Country: US (occurrence: US)
  Receive Date: 20131112
  Receipt Date: 20131112
  Transmission Date: 20140711
  Serious: No
  Sender: FDA-Public Use
  Company Number: US-AMGEN-USASP2013048680

PATIENT
  Age: 57 Year
  Sex: Female

DRUGS (4)
  1. ARANESP [Suspect]
     Indication: PRODUCT USED FOR UNKNOWN INDICATION
  2. ALOXI [Concomitant]
  3. CARBOPLATIN [Concomitant]
  4. CAMPTOSAR [Concomitant]

REACTIONS (1)
  - Expired drug administered [Unknown]
